FAERS Safety Report 6210900-8 (Version None)
Quarter: 2009Q2

REPORT INFORMATION
  Report Type: 
  Country: None (occurrence: None)
  Receive Date: 20090601
  Receipt Date: 20090520
  Transmission Date: 20091009
  Serious: Yes (Disabling)
  Sender: FDA-Public Use
  Company Number: US-ASTRAZENECA-2008UW11770

PATIENT
  Age: 41 Year
  Sex: Female

DRUGS (17)
  1. MARCAINE [Suspect]
     Indication: MUSCULOSKELETAL PAIN
     Dosage: 270 ML, 0.25% CONTINUOUS VIA PAIN PUMP, INTRA-ARTICULAR
     Route: 042
     Dates: start: 20070529
  2. MARCAINE [Suspect]
     Indication: LOCAL ANAESTHESIA
     Dosage: 270 ML, 0.25% CONTINUOUS VIA PAIN PUMP, INTRA-ARTICULAR
     Route: 042
     Dates: start: 20070529
  3. MARCAINE [Suspect]
     Dosage: 10 ML, 0.5% RIGHT HAND, INJECTION
     Route: 042
     Dates: start: 20070529, end: 20070529
  4. MARCAINE [Suspect]
     Dosage: 10 ML, 0.5% RIGHT HAND, INJECTION
     Route: 042
     Dates: start: 20070529, end: 20070529
  5. MARCAINE [Suspect]
     Dosage: 270 ML, 0.25% CONTINUOUS VIA PAIN PUMP
     Route: 042
     Dates: start: 20070824
  6. MARCAINE [Suspect]
     Dosage: 270 ML, 0.25% CONTINUOUS VIA PAIN PUMP
     Route: 042
     Dates: start: 20070824
  7. MARCAINE [Suspect]
     Dosage: 20 ML, 0.25% RIGHT SHOULDER, INJECTION
     Route: 042
     Dates: start: 20070529, end: 20070529
  8. MARCAINE [Suspect]
     Dosage: 20 ML, 0.25% RIGHT SHOULDER, INJECTION
     Route: 042
     Dates: start: 20070529, end: 20070529
  9. MARCAINE [Suspect]
     Dosage: 0.5% INTRA-ARTICULAR
     Route: 042
     Dates: start: 20070824, end: 20070824
  10. MARCAINE [Suspect]
     Dosage: 0.5% INTRA-ARTICULAR
     Route: 042
     Dates: start: 20070824, end: 20070824
  11. MARCAINE [Suspect]
     Dosage: 30 ML, 0.25% 1:1000000
     Route: 042
     Dates: start: 20070824, end: 20070824
  12. MARCAINE [Suspect]
     Dosage: 30 ML, 0.25% 1:1000000
     Route: 042
     Dates: start: 20070824, end: 20070824
  13. I-FLOW PAIN PUMP [Suspect]
     Indication: MUSCULOSKELETAL PAIN
     Dosage: CONTINUOUS VIA PAIN PUMP, INTRA-ARTICULAR
     Dates: start: 20070529
  14. ANCEF [Concomitant]
     Indication: PREMEDICATION
     Route: 042
     Dates: start: 20070529, end: 20070529
  15. ANCEF [Concomitant]
     Route: 042
     Dates: start: 20070824, end: 20070824
  16. LACTATED RINGER'S [Concomitant]
     Dates: start: 20070529, end: 20070529
  17. LACTATED RINGER'S [Concomitant]
     Dates: start: 20070824, end: 20070824

REACTIONS (3)
  - CHONDROLYSIS [None]
  - CHONDROMALACIA [None]
  - MUSCULOSKELETAL PAIN [None]
